FAERS Safety Report 9696697 (Version 1)
Quarter: 2013Q4

REPORT INFORMATION
  Report Type: Spontaneous
  Country: US (occurrence: US)
  Receive Date: 20131119
  Receipt Date: 20131119
  Transmission Date: 20140711
  Serious: No
  Sender: FDA-Public Use
  Company Number: US-GILEAD-2007-0014079

PATIENT
  Sex: Female
  Weight: 44.45 kg

DRUGS (6)
  1. LETAIRIS [Suspect]
     Indication: PULMONARY ARTERIAL HYPERTENSION
     Route: 048
     Dates: start: 20071007
  2. FLOLAN 1.5 MG [Concomitant]
     Indication: PULMONARY ARTERIAL HYPERTENSION
     Dosage: CONTINOUS
     Route: 042
     Dates: start: 200708
  3. REVATIO [Concomitant]
     Indication: PULMONARY ARTERIAL HYPERTENSION
     Route: 048
     Dates: start: 200709
  4. PROTONIX [Concomitant]
     Route: 048
  5. SPIRONOLACTONE [Concomitant]
     Route: 048
  6. POTASSIUM CHLORIDE [Concomitant]
     Route: 048

REACTIONS (2)
  - Back pain [Unknown]
  - Swelling face [Unknown]
